FAERS Safety Report 8847229 (Version 1)
Quarter: 2012Q4

REPORT INFORMATION
  Report Type: 
  Country: US (occurrence: US)
  Receive Date: 20121018
  Receipt Date: 20121018
  Transmission Date: 20130627
  Serious: No
  Sender: FDA-Public Use
  Company Number: PHEH2012US020361

PATIENT
  Sex: Male

DRUGS (8)
  1. TASIGNA [Suspect]
     Indication: CHRONIC MYELOID LEUKAEMIA
     Dosage: 150 mg, BID
     Route: 048
     Dates: start: 20110228
  2. DIAZEPAM [Concomitant]
  3. LOSARTAN [Concomitant]
  4. FLOMAX [Concomitant]
  5. VIAGRA [Concomitant]
  6. VERAPAMIL [Concomitant]
  7. EXCEDRIN [Concomitant]
  8. GLUCOSAMINE [Concomitant]

REACTIONS (2)
  - Urticaria [Recovering/Resolving]
  - Rash pruritic [Recovering/Resolving]
